FAERS Safety Report 25142931 (Version 1)
Quarter: 2025Q2

REPORT INFORMATION
  Report Type: Report from Study
  Country: IT (occurrence: IT)
  Receive Date: 20250401
  Receipt Date: 20250401
  Transmission Date: 20250716
  Serious: Yes (Hospitalization, Other)
  Sender: AMGEN
  Company Number: IT-AMGEN-ITANI2025060113

PATIENT
  Age: 65 Year
  Sex: Female
  Weight: 62 kg

DRUGS (1)
  1. CARFILZOMIB [Suspect]
     Active Substance: CARFILZOMIB
     Indication: Plasma cell myeloma
     Route: 040
     Dates: start: 20230403, end: 20231124

REACTIONS (1)
  - COVID-19 pneumonia [Recovered/Resolved]

NARRATIVE: CASE EVENT DATE: 20231204
